FAERS Safety Report 7985608-9 (Version None)
Quarter: 2011Q4

REPORT INFORMATION
  Report Type: 
  Country: None (occurrence: None)
  Receive Date: 20111216
  Receipt Date: 20111208
  Transmission Date: 20120403
  Serious: Yes (Other)
  Sender: FDA-Public Use
  Company Number: FR-BRISTOL-MYERS SQUIBB COMPANY-16284283

PATIENT
  Age: 25 Year
  Sex: Male

DRUGS (2)
  1. ABILIFY [Suspect]
     Indication: SCHIZOPHRENIA
  2. TERCIAN [Concomitant]

REACTIONS (4)
  - DELUSION [None]
  - MOVEMENT DISORDER [None]
  - HALLUCINATION [None]
  - DEPRESSION [None]
